FAERS Safety Report 18607350 (Version 5)
Quarter: 2022Q2

REPORT INFORMATION
  Report Type: Spontaneous
  Country: US (occurrence: None)
  Receive Date: 20201212
  Receipt Date: 20220406
  Transmission Date: 20220721
  Serious: Yes (Other)
  Sender: FDA-Public Use
  Company Number: US-ROCHE-2694552

PATIENT
  Sex: Female

DRUGS (24)
  1. ACTEMRA [Suspect]
     Active Substance: TOCILIZUMAB
     Indication: Giant cell arteritis
     Dosage: STRENGTH: 162 MG/0.9 ML?ONGOING: YES. INJECT 1 PEN UNDER THE SKIN EVERY 14 DAYS
     Route: 058
     Dates: start: 20201116
  2. ACTEMRA [Suspect]
     Active Substance: TOCILIZUMAB
     Route: 058
     Dates: start: 20200728
  3. ACTEMRA [Suspect]
     Active Substance: TOCILIZUMAB
     Indication: Giant cell arteritis
     Dosage: 162 MG/0.9 ML PFS?ONGING-YES
     Route: 058
     Dates: start: 20200713
  4. ASPIRIN [Concomitant]
     Active Substance: ASPIRIN
  5. ASPIRIN [Concomitant]
     Active Substance: ASPIRIN
  6. ATORVASTATIN CALCIUM [Concomitant]
     Active Substance: ATORVASTATIN CALCIUM
     Route: 048
  7. AZITHROMYCIN [Concomitant]
     Active Substance: AZITHROMYCIN
  8. CEFADROXIL [Concomitant]
     Active Substance: CEFADROXIL
  9. CLOTRIMAZOLE [Concomitant]
     Active Substance: CLOTRIMAZOLE
  10. CYANOCOBALAMIN [Concomitant]
     Active Substance: CYANOCOBALAMIN
  11. DICLOFENAC SODIUM [Concomitant]
     Active Substance: DICLOFENAC SODIUM
  12. FERROUS SULFATE [Concomitant]
     Active Substance: FERROUS SULFATE
  13. GABAPENTIN [Concomitant]
     Active Substance: GABAPENTIN
  14. LOSARTAN POTASSIUM [Concomitant]
     Active Substance: LOSARTAN POTASSIUM
  15. METFORMIN HYDROCHLORIDE [Concomitant]
     Active Substance: METFORMIN HYDROCHLORIDE
  16. METOPROLOL SUCCINATE [Concomitant]
     Active Substance: METOPROLOL SUCCINATE
  17. NITROFURANTOIN [Concomitant]
     Active Substance: NITROFURANTOIN
  18. NORTRIPTYLINE HYDROCHLORIDE [Concomitant]
     Active Substance: NORTRIPTYLINE HYDROCHLORIDE
  19. OLMESARTAN MEDOXOMIL [Concomitant]
     Active Substance: OLMESARTAN MEDOXOMIL
  20. OMEPRAZOLE [Concomitant]
     Active Substance: OMEPRAZOLE
  21. PANTOPRAZOLE SODIUM [Concomitant]
     Active Substance: PANTOPRAZOLE SODIUM
  22. PREDNISONE [Concomitant]
     Active Substance: PREDNISONE
  23. SPIRONOLACTONE [Concomitant]
     Active Substance: SPIRONOLACTONE
  24. VENTOLIN HFA [Concomitant]
     Active Substance: ALBUTEROL SULFATE

REACTIONS (21)
  - Transient ischaemic attack [Unknown]
  - Diabetes mellitus [Unknown]
  - Urinary tract infection [Unknown]
  - Arteriosclerosis coronary artery [Unknown]
  - Mental status changes [Unknown]
  - Mood swings [Unknown]
  - Headache [Unknown]
  - Memory impairment [Unknown]
  - Hypertension [Unknown]
  - Anaemia [Unknown]
  - Antinuclear antibody increased [Unknown]
  - Intermittent claudication [Unknown]
  - Oesophagitis [Unknown]
  - Hyperlipidaemia [Unknown]
  - Back pain [Unknown]
  - Blood iron decreased [Unknown]
  - Obesity [Unknown]
  - Sleep disorder [Unknown]
  - Vitamin D deficiency [Unknown]
  - Vitamin B12 deficiency [Unknown]
  - Blood pressure abnormal [Unknown]
